FAERS Safety Report 26118815 (Version 1)
Quarter: 2025Q4

REPORT INFORMATION
  Report Type: Spontaneous
  Country: US (occurrence: US)
  Receive Date: 20251203
  Receipt Date: 20251203
  Transmission Date: 20260117
  Serious: No
  Sender: RECKITT BENCKISER
  Company Number: US-PROD-AS2-212756134-RB-98819-2021

PATIENT
  Age: 4 Year
  Sex: Female
  Weight: 27 kg

DRUGS (1)
  1. DELSYM AND CHILDRENS DELSYM [Suspect]
     Active Substance: DEXTROMETHORPHAN
     Indication: Product used for unknown indication
     Dosage: ACCIDENTAL INGESTION OF AN UNSPECIFIED AMOUNT OF THE PRODUCT
     Route: 048
     Dates: start: 20211030

REACTIONS (5)
  - Mydriasis [Not Recovered/Not Resolved]
  - Eye symptom [Not Recovered/Not Resolved]
  - Muscular weakness [Not Recovered/Not Resolved]
  - Accidental exposure to product [Not Recovered/Not Resolved]
  - Vomiting [Not Recovered/Not Resolved]

NARRATIVE: CASE EVENT DATE: 20211030
